FAERS Safety Report 21668964 (Version 1)
Quarter: 2022Q4

REPORT INFORMATION
  Report Type: Spontaneous
  Country: US (occurrence: US)
  Receive Date: 20221201
  Receipt Date: 20221201
  Transmission Date: 20230112
  Serious: Yes (Other)
  Sender: FDA-Public Use
  Company Number: US-002147023-NVSC2022US265841

PATIENT
  Age: 60 Year
  Sex: Male

DRUGS (1)
  1. IMATINIB [Suspect]
     Active Substance: IMATINIB
     Indication: Chordoma
     Dosage: TARGETED THERAPY
     Route: 065

REACTIONS (4)
  - Chordoma [Unknown]
  - Malignant neoplasm progression [Unknown]
  - Metastases to skin [Unknown]
  - Product use in unapproved indication [Unknown]
